FAERS Safety Report 18201887 (Version 1)
Quarter: 2020Q3

REPORT INFORMATION
  Report Type: Spontaneous
  Country: US (occurrence: US)
  Receive Date: 20200827
  Receipt Date: 20200827
  Transmission Date: 20201103
  Serious: Yes (Other)
  Sender: FDA-Public Use
  Company Number: US-LUPIN PHARMACEUTICALS INC.-2020-05057

PATIENT
  Sex: Male

DRUGS (2)
  1. POTASSIUM CHLORIDE 20 MEQ/15 ML ORAL SOLUTION [Suspect]
     Active Substance: POTASSIUM CHLORIDE
     Indication: BLOOD POTASSIUM DECREASED
     Dosage: 10 UNK
     Route: 048
  2. POTASSIUM CHLORIDE 20 MEQ/15 ML ORAL SOLUTION [Suspect]
     Active Substance: POTASSIUM CHLORIDE
     Dosage: 20 MEQ (MG), QD
     Route: 048
     Dates: start: 20200811

REACTIONS (7)
  - Product container issue [Unknown]
  - Drug ineffective [Unknown]
  - Wrong technique in product usage process [Unknown]
  - Angina pectoris [Not Recovered/Not Resolved]
  - Product taste abnormal [Unknown]
  - Dysphonia [Not Recovered/Not Resolved]
  - Sinus disorder [Not Recovered/Not Resolved]

NARRATIVE: CASE EVENT DATE: 20200811
